FAERS Safety Report 4379404-1 (Version None)
Quarter: 2004Q2

REPORT INFORMATION
  Report Type: 
  Country: None (occurrence: None)
  Receive Date: 20040614
  Receipt Date: 20040601
  Transmission Date: 20050107
  Serious: Yes (Hospitalization)
  Sender: FDA-Public Use
  Company Number: 8146

PATIENT
  Age: 67 Year
  Sex: Male

DRUGS (12)
  1. METHOTREXATE [Suspect]
     Indication: RHEUMATOID ARTHRITIS
     Dosage: 17.5 MG WEEKLY SC
     Route: 058
     Dates: end: 20040331
  2. ENBREL [Suspect]
     Indication: RHEUMATOID ARTHRITIS
     Dates: start: 20040331, end: 20040407
  3. NICORANDIL [Concomitant]
  4. ATENOLOL [Concomitant]
  5. ISIB XL [Concomitant]
  6. LOSARTAN POTASSIUM [Concomitant]
  7. PREDNISOLONE [Concomitant]
  8. ESOMEPRAZOLE [Concomitant]
  9. DICLOFENAC SODIUM [Concomitant]
  10. HYDROXYCHLOROQUINE SULFATE [Concomitant]
  11. ALENDRONATE SODIUM [Concomitant]
  12. ASPIRIN [Concomitant]

REACTIONS (4)
  - BURSA DISORDER [None]
  - JOINT ABSCESS [None]
  - PURULENCE [None]
  - STAPHYLOCOCCAL INFECTION [None]
